FAERS Safety Report 6971520-0 (Version None)
Quarter: 2010Q3

REPORT INFORMATION
  Report Type: 
  Country: None (occurrence: None)
  Receive Date: 20100908
  Receipt Date: 20100827
  Transmission Date: 20110219
  Serious: Yes (Hospitalization)
  Sender: FDA-Public Use
  Company Number: GXKR2010TR09799

PATIENT
  Age: 37 Year
  Sex: Male

DRUGS (3)
  1. VALACICLOVIR (NGX) [Suspect]
     Dosage: 4.5 G/DAY
     Route: 065
  2. MYCOPHENOLATE MOFETIL [Concomitant]
     Dosage: 730 MG, QD
     Route: 065
  3. TACROLIMUS [Concomitant]
     Dosage: 2 MG, QD
     Route: 065

REACTIONS (3)
  - DYSPEPSIA [None]
  - FATIGUE [None]
  - NEUTROPENIA [None]
